FAERS Safety Report 13239052 (Version 1)
Quarter: 2017Q1

REPORT INFORMATION
  Report Type: Spontaneous
  Country: US (occurrence: US)
  Receive Date: 20170216
  Receipt Date: 20170216
  Transmission Date: 20170428
  Serious: Yes (Hospitalization, Other)
  Sender: FDA-Public Use
  Company Number: US-BAXTER-2017BAX006194

PATIENT
  Sex: Female

DRUGS (32)
  1. CYCLOPHOSPHAMIDE FOR INJECTION, USP [Suspect]
     Active Substance: CYCLOPHOSPHAMIDE
     Indication: B-CELL LYMPHOMA
     Route: 065
     Dates: start: 20160520
  2. METHOTREXATE. [Suspect]
     Active Substance: METHOTREXATE
     Indication: B-CELL LYMPHOMA
     Route: 037
     Dates: start: 20150130
  3. HYDROCORTISONE. [Suspect]
     Active Substance: HYDROCORTISONE
     Indication: LYMPHOCYTIC LEUKAEMIA
     Route: 065
     Dates: start: 20150401
  4. 6 MP [Suspect]
     Active Substance: MERCAPTOPURINE
     Indication: LYMPHOCYTIC LEUKAEMIA
  5. ZOSYN [Suspect]
     Active Substance: PIPERACILLIN SODIUM\TAZOBACTAM SODIUM
     Indication: DRUG ERUPTION
     Route: 065
  6. 6 MP [Suspect]
     Active Substance: MERCAPTOPURINE
     Indication: B-CELL LYMPHOMA
     Route: 048
     Dates: start: 20150323
  7. FLUDARABINE [Suspect]
     Active Substance: FLUDARABINE PHOSPHATE
     Indication: B-CELL LYMPHOMA
     Route: 065
     Dates: start: 20160421
  8. MEPRON [Suspect]
     Active Substance: ATOVAQUONE
     Indication: PRODUCT USED FOR UNKNOWN INDICATION
     Route: 065
     Dates: start: 20160517
  9. CYCLOPHOSPHAMIDE FOR INJECTION, USP [Suspect]
     Active Substance: CYCLOPHOSPHAMIDE
     Indication: TRIPLE NEGATIVE BREAST CANCER
     Route: 065
  10. CYCLOPHOSPHAMIDE FOR INJECTION, USP [Suspect]
     Active Substance: CYCLOPHOSPHAMIDE
     Indication: LYMPHOCYTIC LEUKAEMIA
  11. ATRYN [Suspect]
     Active Substance: ANTITHROMBIN ALFA
     Indication: LYMPHOCYTIC LEUKAEMIA
  12. L-ASPARAGINASE [Suspect]
     Active Substance: ASPARAGINASE
     Indication: PRODUCT USED FOR UNKNOWN INDICATION
     Route: 065
     Dates: start: 201411, end: 20141128
  13. LOVENOX [Suspect]
     Active Substance: ENOXAPARIN SODIUM
     Indication: PULMONARY EMBOLISM
     Route: 065
     Dates: start: 20141201
  14. FLUDARABINE [Suspect]
     Active Substance: FLUDARABINE PHOSPHATE
     Indication: IMMUNOMODULATORY THERAPY
  15. CYTARABINE. [Suspect]
     Active Substance: CYTARABINE
     Indication: B-CELL LYMPHOMA
     Route: 065
     Dates: start: 20160421
  16. CYTARABINE. [Suspect]
     Active Substance: CYTARABINE
     Indication: LYMPHOCYTIC LEUKAEMIA
  17. CYCLOPHOSPHAMIDE FOR INJECTION, USP [Suspect]
     Active Substance: CYCLOPHOSPHAMIDE
     Indication: IMMUNOMODULATORY THERAPY
  18. ADRIAMYCIN [Suspect]
     Active Substance: DOXORUBICIN HYDROCHLORIDE
     Indication: LYMPHOCYTIC LEUKAEMIA
  19. ATRYN [Suspect]
     Active Substance: ANTITHROMBIN ALFA
     Indication: B-CELL LYMPHOMA
     Route: 065
     Dates: start: 201411
  20. ADRIAMYCIN [Suspect]
     Active Substance: DOXORUBICIN HYDROCHLORIDE
     Indication: TRIPLE NEGATIVE BREAST CANCER
     Route: 065
  21. ADRIAMYCIN [Suspect]
     Active Substance: DOXORUBICIN HYDROCHLORIDE
     Indication: B-CELL LYMPHOMA
  22. METHOTREXATE. [Suspect]
     Active Substance: METHOTREXATE
     Indication: LYMPHOCYTIC LEUKAEMIA
     Route: 037
     Dates: start: 20150320
  23. HYDROCORTISONE. [Suspect]
     Active Substance: HYDROCORTISONE
     Indication: B-CELL LYMPHOMA
     Route: 065
     Dates: start: 20150320
  24. BACTRIM [Suspect]
     Active Substance: SULFAMETHOXAZOLE\TRIMETHOPRIM
     Indication: PRODUCT USED FOR UNKNOWN INDICATION
     Route: 065
  25. VINCRISTINE [Suspect]
     Active Substance: VINCRISTINE
     Indication: B-CELL LYMPHOMA
     Route: 042
     Dates: start: 20141107
  26. VINCRISTINE [Suspect]
     Active Substance: VINCRISTINE
     Indication: LYMPHOCYTIC LEUKAEMIA
     Dosage: DOSE REDUCED TO 1 MG
     Route: 042
     Dates: start: 20141128
  27. GRANULOCYTE COLONY STIMULATING FACTOR [Suspect]
     Active Substance: GRANULOCYTE COLONY-STIMULATING FACTOR NOS
     Indication: B-CELL LYMPHOMA
  28. CEFEPIME [Suspect]
     Active Substance: CEFEPIME HYDROCHLORIDE
     Indication: FEBRILE NEUTROPENIA
     Route: 065
  29. FLUDARABINE [Suspect]
     Active Substance: FLUDARABINE PHOSPHATE
     Indication: LYMPHOCYTIC LEUKAEMIA
     Route: 065
     Dates: start: 20160520
  30. VANCOMYCIN [Suspect]
     Active Substance: VANCOMYCIN
     Indication: CLOSTRIDIUM DIFFICILE INFECTION
     Route: 048
  31. FLAGYL [Suspect]
     Active Substance: METRONIDAZOLE\METRONIDAZOLE HYDROCHLORIDE
     Indication: CLOSTRIDIUM DIFFICILE INFECTION
     Route: 048
     Dates: start: 20160517
  32. GRANULOCYTE COLONY STIMULATING FACTOR [Suspect]
     Active Substance: GRANULOCYTE COLONY-STIMULATING FACTOR NOS
     Indication: LYMPHOCYTIC LEUKAEMIA
     Route: 065
     Dates: start: 20160421

REACTIONS (21)
  - Acute lymphocytic leukaemia recurrent [Unknown]
  - Bone marrow oedema [Unknown]
  - Hypertriglyceridaemia [Recovering/Resolving]
  - Hyponatraemia [Recovering/Resolving]
  - Pyrexia [Unknown]
  - Bone marrow infiltration [Unknown]
  - Staphylococcal bacteraemia [Unknown]
  - Neutropenia [Unknown]
  - Spondylolisthesis [Unknown]
  - Neurotoxicity [Unknown]
  - Soft tissue swelling [Unknown]
  - Rash [Unknown]
  - Pulmonary embolism [Recovering/Resolving]
  - Clostridium difficile infection [Unknown]
  - Drug eruption [Unknown]
  - Hyperbilirubinaemia [Recovering/Resolving]
  - Spinal cord compression [Unknown]
  - Lymphocytic leukaemia [Unknown]
  - Bone marrow oedema [Unknown]
  - B-cell lymphoma [Unknown]
  - Febrile neutropenia [Unknown]

NARRATIVE: CASE EVENT DATE: 201404
